FAERS Safety Report 7011031-X (Version None)
Quarter: 2010Q3

REPORT INFORMATION
  Report Type: 
  Country: None (occurrence: None)
  Receive Date: 20100922
  Receipt Date: 20100922
  Transmission Date: 20110219
  Serious: No
  Sender: FDA-Public Use
  Company Number: None

PATIENT
  Age: 33 Year
  Sex: Male
  Weight: 95.2554 kg

DRUGS (2)
  1. CYMBALTA [Suspect]
     Indication: MYOCARDIAL INFARCTION
     Dosage: 30MG QD PO
     Route: 048
     Dates: start: 20050301
  2. CYMBALTA [Suspect]
     Indication: POST-TRAUMATIC STRESS DISORDER
     Dosage: 30MG QD PO
     Route: 048
     Dates: start: 20050301

REACTIONS (1)
  - DRUG WITHDRAWAL MAINTENANCE THERAPY [None]
